FAERS Safety Report 18435941 (Version 1)
Quarter: 2020Q4

REPORT INFORMATION
  Report Type: Spontaneous
  Country: US (occurrence: US)
  Receive Date: 20201028
  Receipt Date: 20201028
  Transmission Date: 20210114
  Serious: Yes (Hospitalization)
  Sender: FDA-Public Use
  Company Number: None

PATIENT
  Sex: Female

DRUGS (10)
  1. ASPIRIN. [Concomitant]
     Active Substance: ASPIRIN
  2. BRILINTA [Concomitant]
     Active Substance: TICAGRELOR
  3. TUMS EX [Concomitant]
     Active Substance: CALCIUM CARBONATE
  4. VITAMIN C [Concomitant]
     Active Substance: ASCORBIC ACID
  5. LOSARTAN POT [Concomitant]
     Active Substance: LOSARTAN POTASSIUM
  6. PROBIOTIC [Concomitant]
     Active Substance: PROBIOTICS NOS
  7. REPATHA [Suspect]
     Active Substance: EVOLOCUMAB
     Indication: HYPERLIPIDAEMIA
     Route: 058
     Dates: start: 201803
  8. VITAMIN D3 [Concomitant]
     Active Substance: CHOLECALCIFEROL
  9. MAG OXIDE [Concomitant]
     Active Substance: MAGNESIUM OXIDE
  10. MIL ADRENE [Concomitant]

REACTIONS (1)
  - Cardiac operation [None]
